FAERS Safety Report 9496309 (Version 1)
Quarter: 2013Q3

REPORT INFORMATION
  Report Type: Spontaneous
  Country: DE (occurrence: None)
  Receive Date: 20130829
  Receipt Date: 20130829
  Transmission Date: 20140515
  Serious: Yes (Congenital Anomaly, Other)
  Sender: FDA-Public Use
  Company Number: NSR_01229_2013

PATIENT
  Sex: 0

DRUGS (7)
  1. ALLOPURINOL [Suspect]
     Indication: MATERNAL EXPOSURE TIMING UNSPECIFIED
     Dosage: (100 MG, PER DAY)  8 WEEKS, 2 DAYS UNTIL NOT CONTINUING
  2. AMLODIPINE [Concomitant]
  3. VALSARTAN [Concomitant]
  4. METOPROLOL [Concomitant]
  5. HYDROCHLOROTHIAZIDE [Concomitant]
  6. ALPHA-METHYLDOPA [Concomitant]
  7. DESLORATADINA [Concomitant]

REACTIONS (5)
  - Patent ductus arteriosus [None]
  - Eyelid ptosis [None]
  - Umbilical hernia [None]
  - Premature baby [None]
  - Maternal drugs affecting foetus [None]
